FAERS Safety Report 19583965 (Version 1)
Quarter: 2021Q3

REPORT INFORMATION
  Report Type: Report from Study
  Country: US (occurrence: US)
  Receive Date: 20210720
  Receipt Date: 20210720
  Transmission Date: 20211014
  Serious: Yes (Other)
  Sender: FDA-Public Use
  Company Number: US-TAKEDA-2021TUS038513

PATIENT
  Age: 43 Year
  Sex: Female

DRUGS (1)
  1. VEDOLIZUMAB [Suspect]
     Active Substance: VEDOLIZUMAB
     Indication: COLITIS ULCERATIVE
     Dosage: 300 MILLIGRAM
     Route: 042
     Dates: start: 20210609

REACTIONS (4)
  - Colitis ulcerative [Unknown]
  - Abdominal pain upper [Unknown]
  - Pyrexia [Not Recovered/Not Resolved]
  - Cold sweat [Unknown]

NARRATIVE: CASE EVENT DATE: 20210611
